FAERS Safety Report 9455386 (Version 1)
Quarter: 2013Q3

REPORT INFORMATION
  Report Type: Spontaneous
  Country: CH (occurrence: None)
  Receive Date: 20130808
  Receipt Date: 20130808
  Transmission Date: 20140515
  Serious: Yes (Life-Threatening)
  Sender: FDA-Public Use
  Company Number: 20130429

PATIENT
  Age: 39 Year
  Sex: Female
  Weight: 105 kg

DRUGS (2)
  1. FERINJECT [Suspect]
     Indication: IRON DEFICIENCY ANAEMIA
     Route: 041
     Dates: start: 20130712, end: 20130712
  2. FERINJECT [Suspect]
     Indication: VAGINAL HAEMORRHAGE
     Route: 041
     Dates: start: 20130712, end: 20130712

REACTIONS (3)
  - Dyspnoea [None]
  - Chest discomfort [None]
  - Dizziness [None]
